FAERS Safety Report 8471656-1 (Version None)
Quarter: 2012Q2

REPORT INFORMATION
  Report Type: 
  Country: None (occurrence: None)
  Receive Date: 20120627
  Receipt Date: 20120503
  Transmission Date: 20120825
  Serious: Yes (Disabling)
  Sender: FDA-Public Use
  Company Number: US-ROCHE-1066548

PATIENT
  Sex: Female
  Weight: 73.029 kg

DRUGS (1)
  1. VISMODEGIB [Suspect]
     Indication: SKIN CANCER
     Route: 048
     Dates: start: 20111208, end: 20120209

REACTIONS (5)
  - DEEP VEIN THROMBOSIS [None]
  - PULMONARY EMBOLISM [None]
  - RADIUS FRACTURE [None]
  - ULNA FRACTURE [None]
  - FALL [None]
